FAERS Safety Report 10137980 (Version 2)
Quarter: 2014Q3

REPORT INFORMATION
  Report Type: Spontaneous
  Country: CA (occurrence: None)
  Receive Date: 20140423
  Receipt Date: 20140711
  Transmission Date: 20150326
  Serious: Yes (Other)
  Sender: FDA-Public Use
  Company Number: CA-145527

PATIENT
  Age: 32 Year
  Sex: Female

DRUGS (1)
  1. WINRHO SDF LIQUID [Suspect]
     Active Substance: HUMAN RHO(D) IMMUNE GLOBULIN
     Indication: PROPHYLAXIS AGAINST RH ISOIMMUNISATION
     Route: 042
     Dates: start: 20140124, end: 20140124

REACTIONS (7)
  - Erythema [None]
  - Maternal exposure during pregnancy [None]
  - Blood pressure diastolic increased [None]
  - Hypersensitivity [None]
  - Cough [None]
  - Tachycardia [None]
  - Dyspnoea [None]

NARRATIVE: CASE EVENT DATE: 20140124
